FAERS Safety Report 11052373 (Version 1)
Quarter: 2015Q2

REPORT INFORMATION
  Report Type: Spontaneous
  Country: ES (occurrence: ES)
  Receive Date: 20150421
  Receipt Date: 20150421
  Transmission Date: 20150821
  Serious: Yes (Other)
  Sender: FDA-Public Use
  Company Number: ES-JNJFOC-20150407260

PATIENT
  Age: 30 Year
  Sex: Male
  Weight: 76 kg

DRUGS (2)
  1. XEPLION [Suspect]
     Active Substance: PALIPERIDONE PALMITATE
     Indication: SCHIZOPHRENIA
     Route: 030
     Dates: start: 201412
  2. COCAINE [Suspect]
     Active Substance: COCAINE
     Indication: PRODUCT USED FOR UNKNOWN INDICATION
     Route: 065

REACTIONS (4)
  - Balance disorder [Recovered/Resolved]
  - Eye movement disorder [Recovered/Resolved]
  - Trigeminal nerve disorder [Recovered/Resolved]
  - Substance abuse [Recovering/Resolving]

NARRATIVE: CASE EVENT DATE: 201502
